FAERS Safety Report 19879950 (Version 1)
Quarter: 2021Q3

REPORT INFORMATION
  Report Type: Report from Study
  Country: US (occurrence: US)
  Receive Date: 20210924
  Receipt Date: 20210924
  Transmission Date: 20211014
  Serious: Yes (Death, Other)
  Sender: FDA-Public Use
  Company Number: US-SA-2020SA256209

PATIENT
  Age: 73 Year
  Sex: Male

DRUGS (3)
  1. DUPILUMAB [Suspect]
     Active Substance: DUPILUMAB
     Indication: ASTHMA
     Dosage: 400 MG, 1X
     Route: 058
  2. DUPILUMAB [Suspect]
     Active Substance: DUPILUMAB
     Dosage: 200 MG, QOW
     Route: 058
     Dates: start: 20201203
  3. DUPILUMAB [Suspect]
     Active Substance: DUPILUMAB
     Indication: CHRONIC SINUSITIS
     Dosage: 300 MG, QOW
     Route: 058

REACTIONS (10)
  - Pulmonary fibrosis [Fatal]
  - Heart rate increased [Fatal]
  - Dyspnoea [Unknown]
  - Sepsis [Fatal]
  - Renal failure [Fatal]
  - Pneumonia [Fatal]
  - Off label use [Unknown]
  - Cardiac failure [Fatal]
  - Chest pain [Fatal]
  - Hypotension [Fatal]

NARRATIVE: CASE EVENT DATE: 2020
